FAERS Safety Report 11727078 (Version 6)
Quarter: 2016Q2

REPORT INFORMATION
  Report Type: Report from Study
  Country: US (occurrence: US)
  Receive Date: 20151112
  Receipt Date: 20160523
  Transmission Date: 20160815
  Serious: Yes (Other)
  Sender: FDA-Public Use
  Company Number: US-AMGEN-USASL2015117564

PATIENT
  Age: 50 Year
  Sex: Female

DRUGS (2)
  1. ENBREL [Suspect]
     Active Substance: ETANERCEPT
     Dosage: 50 MG, WEEKLY
     Route: 065
  2. ENBREL [Suspect]
     Active Substance: ETANERCEPT
     Indication: RHEUMATOID ARTHRITIS
     Dosage: 50 MG, WEEKLY
     Route: 065
     Dates: start: 20150921

REACTIONS (11)
  - Intentional product misuse [Unknown]
  - Injection site bruising [Unknown]
  - Depression [Unknown]
  - Bipolar disorder [Unknown]
  - Thyroid disorder [Unknown]
  - Paranoia [Unknown]
  - Hand deformity [Unknown]
  - Crying [Unknown]
  - Fear of injection [Unknown]
  - Inappropriate schedule of drug administration [Unknown]
  - Injection site pain [Unknown]

NARRATIVE: CASE EVENT DATE: 2015
